FAERS Safety Report 6541127-8 (Version None)
Quarter: 2010Q1

REPORT INFORMATION
  Report Type: 
  Country: None (occurrence: None)
  Receive Date: 20100118
  Receipt Date: 20091116
  Transmission Date: 20100710
  Serious: Yes (Other)
  Sender: FDA-Public Use
  Company Number: US-JNJFOC-20091104903

PATIENT
  Sex: Male

DRUGS (1)
  1. INVEGA SUSTENNA [Suspect]
     Indication: DRUG USE FOR UNKNOWN INDICATION
     Dosage: 234 MG INITIAL DOSAGE. 8 DAYS LATER, A 156 MG DOSAGE. NEXT DAY, A 156 MG DOSAGE WAS GIVEN TWICE.
     Route: 030

REACTIONS (4)
  - DIARRHOEA [None]
  - IRRITABILITY [None]
  - OVERDOSE [None]
  - TONGUE DISORDER [None]
